FAERS Safety Report 4538166-5 (Version None)
Quarter: 2004Q4

REPORT INFORMATION
  Report Type: 
  Country: None (occurrence: None)
  Receive Date: 20041221
  Receipt Date: 20041210
  Transmission Date: 20050328
  Serious: Yes (Hospitalization)
  Sender: FDA-Public Use
  Company Number: HQWYE497017NOV04

PATIENT
  Age: 63 Year
  Sex: Male

DRUGS (5)
  1. CORDARONE [Suspect]
     Indication: ATRIAL FIBRILLATION
     Dosage: 200 MG TABLET ORAL
     Route: 048
     Dates: start: 20011101, end: 20030601
  2. BELOC (METOPROLOL TARTRATE) [Concomitant]
  3. MARCUMAR [Concomitant]
  4. MARCUMAR [Concomitant]
  5. SOTALOL HCL [Concomitant]

REACTIONS (5)
  - AMYOTROPHY [None]
  - ARRHYTHMIA [None]
  - DIARRHOEA [None]
  - HYPERTHYROIDISM [None]
  - OEDEMA [None]
